FAERS Safety Report 20140933 (Version 1)
Quarter: 2021Q4

REPORT INFORMATION
  Report Type: Spontaneous
  Country: US (occurrence: US)
  Receive Date: 20211202
  Receipt Date: 20211202
  Transmission Date: 20220303
  Serious: No
  Sender: FDA-Public Use
  Company Number: US-ALLERGAN-2101968US

PATIENT
  Sex: Female

DRUGS (1)
  1. INFED [Suspect]
     Active Substance: IRON DEXTRAN
     Indication: Iron deficiency
     Dosage: 25 MG TEST DOSE/1100 MG INFUSION DOSE
     Route: 042
     Dates: start: 20201013, end: 20201013

REACTIONS (2)
  - Pruritus [Recovered/Resolved]
  - Hypersensitivity [Unknown]
